FAERS Safety Report 20595266 (Version 3)
Quarter: 2022Q2

REPORT INFORMATION
  Report Type: Report from Study
  Country: US (occurrence: US)
  Receive Date: 20220315
  Receipt Date: 20220420
  Transmission Date: 20220721
  Serious: Yes (Other)
  Sender: FDA-Public Use
  Company Number: US-NOVARTISPH-NVSC2022US058964

PATIENT
  Sex: Female

DRUGS (2)
  1. KISQALI [Suspect]
     Active Substance: RIBOCICLIB
     Indication: Breast cancer
     Dosage: UNK
     Route: 065
  2. KISQALI [Suspect]
     Active Substance: RIBOCICLIB
     Dosage: 600 MG, QD
     Route: 048
     Dates: start: 20220307

REACTIONS (9)
  - Retinal haemorrhage [Unknown]
  - Sleep apnoea syndrome [Unknown]
  - Hot flush [Unknown]
  - General physical health deterioration [Unknown]
  - Night sweats [Unknown]
  - Abdominal pain upper [Unknown]
  - Nausea [Unknown]
  - Cough [Unknown]
  - Asthenia [Unknown]
